FAERS Safety Report 23992377 (Version 1)
Quarter: 2024Q2

REPORT INFORMATION
  Report Type: Spontaneous
  Country: US (occurrence: US)
  Receive Date: 20240620
  Receipt Date: 20240620
  Transmission Date: 20240716
  Serious: Yes (Hospitalization, Other)
  Sender: FDA-Public Use
  Company Number: US-JNJFOC-20240640932

PATIENT
  Sex: Female

DRUGS (2)
  1. REMICADE [Suspect]
     Active Substance: INFLIXIMAB
     Indication: Crohn^s disease
     Route: 041
  2. STELARA [Suspect]
     Active Substance: USTEKINUMAB
     Indication: Crohn^s disease
     Route: 058

REACTIONS (16)
  - Ileostomy [Recovered/Resolved]
  - Colectomy [Recovered/Resolved]
  - Hospitalisation [Recovered/Resolved]
  - Gastrointestinal stoma complication [Recovered/Resolved]
  - Pyoderma gangrenosum [Recovered/Resolved]
  - Thrombosis [Recovered/Resolved]
  - Fatigue [Recovering/Resolving]
  - Abdominal pain [Recovering/Resolving]
  - Scar [Not Recovered/Not Resolved]
  - Skin fissures [Unknown]
  - Drug ineffective [Unknown]
  - Migraine [Unknown]
  - Pyrexia [Recovered/Resolved]
  - Panic attack [Unknown]
  - Postural orthostatic tachycardia syndrome [Unknown]
  - Dehydration [Unknown]
